FAERS Safety Report 5431025-5 (Version None)
Quarter: 2007Q3

REPORT INFORMATION
  Report Type: 
  Country: None (occurrence: None)
  Receive Date: 20070830
  Receipt Date: 20070822
  Transmission Date: 20080115
  Serious: Yes (Death)
  Sender: FDA-Public Use
  Company Number: US-KINGPHARMUSA00001-K200701075

PATIENT

DRUGS (1)
  1. EPIPEN [Suspect]
     Indication: ALLERGY TO VENOM
     Dosage: .3 MG, UNK
     Route: 030

REACTIONS (2)
  - DEATH [None]
  - EXPIRED DRUG ADMINISTERED [None]
